FAERS Safety Report 7409486-1 (Version None)
Quarter: 2011Q2

REPORT INFORMATION
  Report Type: 
  Country: None (occurrence: None)
  Receive Date: 20110412
  Receipt Date: 20110323
  Transmission Date: 20111010
  Serious: No
  Sender: FDA-Public Use
  Company Number: US-B.I. PHARMACEUTICALS,INC./RIDGEFIELD-2011-BP-03646BP

PATIENT
  Age: 55 Year
  Sex: Male

DRUGS (10)
  1. BUPROPION HYDROCHLORIDE [Concomitant]
     Indication: ANXIETY
     Dosage: 300 MG
     Route: 048
  2. LEXAPRO [Concomitant]
     Indication: DEPRESSION
     Dosage: 10 MG
     Route: 048
  3. SPIRIVA [Suspect]
     Indication: CHRONIC OBSTRUCTIVE PULMONARY DISEASE
     Dosage: 18 MCG
     Route: 055
     Dates: start: 20090801
  4. OMEPRAZOLE [Concomitant]
     Indication: DYSPEPSIA
     Dosage: 20 MG
     Route: 048
  5. TRAZODONE [Concomitant]
     Indication: INSOMNIA
     Dosage: 100 MG
     Route: 048
  6. METOPROLOL TARTRATE [Concomitant]
     Indication: HEART RATE ABNORMAL
     Dosage: 50 MG
     Route: 048
  7. OMEPRAZOLE [Concomitant]
  8. ADVAIR DISKUS 100/50 [Concomitant]
     Indication: CHRONIC OBSTRUCTIVE PULMONARY DISEASE
     Route: 055
  9. ENALAPRIL MALEATE [Concomitant]
     Indication: HYPERTENSION
     Dosage: 10 MG
     Route: 048
  10. METOPROLOL TARTRATE [Concomitant]
     Indication: HYPERTENSION

REACTIONS (1)
  - DRUG INEFFECTIVE [None]
